FAERS Safety Report 8088259-3 (Version None)
Quarter: 2012Q1

REPORT INFORMATION
  Report Type: 
  Country: None (occurrence: None)
  Receive Date: 20120128
  Receipt Date: 20110412
  Transmission Date: 20120608
  Serious: No
  Sender: FDA-Public Use
  Company Number: US-ABBOTT-11P-163-0718402-00

PATIENT
  Age: 53 Year
  Sex: Female

DRUGS (7)
  1. OMEPRAZOLE [Concomitant]
     Indication: PRODUCT USED FOR UNKNOWN INDICATION
     Dosage: PRN
  2. BROMAZEPAM [Concomitant]
     Indication: ANXIETY
     Dosage: PRN
  3. LASIX [Concomitant]
     Indication: OEDEMA PERIPHERAL
     Dosage: PRN
  4. VITAMIN B-12 [Concomitant]
     Indication: PRODUCT USED FOR UNKNOWN INDICATION
     Dosage: 2500 UNITS DAILY
  5. ENALAPRIL [Concomitant]
     Indication: HYPERTENSION
     Dosage: 10MG DAILY
  6. HUMIRA [Suspect]
     Indication: PSORIASIS
     Dates: start: 20080101
  7. VITAMIN D [Concomitant]
     Indication: PRODUCT USED FOR UNKNOWN INDICATION
     Dosage: 50,000 UNITS WEEKLY

REACTIONS (6)
  - INFLUENZA [None]
  - WRONG TECHNIQUE IN DRUG USAGE PROCESS [None]
  - PSORIASIS [None]
  - SLEEP APNOEA SYNDROME [None]
  - COUGH [None]
  - DRUG DOSE OMISSION [None]
